FAERS Safety Report 12206539 (Version 1)
Quarter: 2016Q1

REPORT INFORMATION
  Report Type: Spontaneous
  Country: US (occurrence: None)
  Receive Date: 20160323
  Receipt Date: 20160323
  Transmission Date: 20160526
  Serious: Yes (Disabling)
  Sender: FDA-Public Use
  Company Number: None

PATIENT
  Age: 32 Year
  Sex: Female
  Weight: 54.43 kg

DRUGS (2)
  1. CLARAVIS [Suspect]
     Active Substance: ISOTRETINOIN
     Indication: ACNE CYSTIC
     Dosage: 1 PILL THREE TIMES DAILY TAKEN BY MOUTH
     Route: 048
  2. PARAGARD T 380A [Concomitant]
     Active Substance: COPPER

REACTIONS (1)
  - Alopecia [None]

NARRATIVE: CASE EVENT DATE: 20151204
